FAERS Safety Report 14134539 (Version 1)
Quarter: 2017Q4

REPORT INFORMATION
  Report Type: Spontaneous
  Country: US (occurrence: US)
  Receive Date: 20171027
  Receipt Date: 20171027
  Transmission Date: 20180321
  Serious: No
  Sender: FDA-Public Use
  Company Number: US-LEO PHARMA-305172

PATIENT
  Sex: Female

DRUGS (1)
  1. PICATO [Suspect]
     Active Substance: INGENOL MEBUTATE
     Indication: ACTINIC KERATOSIS
     Route: 061
     Dates: start: 201710

REACTIONS (4)
  - Application site pain [Recovered/Resolved]
  - Loss of personal independence in daily activities [Unknown]
  - Eye swelling [Recovered/Resolved]
  - Eye irritation [Recovered/Resolved]
